FAERS Safety Report 5921221-2 (Version None)
Quarter: 2008Q4

REPORT INFORMATION
  Report Type: 
  Country: None (occurrence: None)
  Receive Date: 20081016
  Receipt Date: 20081014
  Transmission Date: 20090506
  Serious: Yes (Death)
  Sender: FDA-Public Use
  Company Number: CA-B.I. PHARMACEUTICALS,INC./RIDGEFIELD-2008-CN-00528CN

PATIENT
  Sex: Male

DRUGS (4)
  1. CATAPRES [Suspect]
     Dosage: 200MCG
     Route: 037
     Dates: start: 20080910, end: 20080913
  2. MORPHINE [Concomitant]
     Dosage: 200MG
     Route: 058
     Dates: start: 20080801
  3. KETALAR [Concomitant]
     Dosage: 100MG
     Route: 058
     Dates: start: 20080801
  4. NOZINAN [Concomitant]
     Dosage: 30MG
     Route: 058

REACTIONS (1)
  - PULMONARY EMBOLISM [None]
